FAERS Safety Report 16688096 (Version 1)
Quarter: 2019Q3

REPORT INFORMATION
  Report Type: Spontaneous
  Country: US (occurrence: US)
  Receive Date: 20190809
  Receipt Date: 20190809
  Transmission Date: 20191004
  Serious: Yes (Hospitalization)
  Sender: FDA-Public Use
  Company Number: US-BRAINTREE LABORATORIES-190426

PATIENT
  Age: 64 Year
  Sex: Male
  Weight: 127 kg

DRUGS (1)
  1. GOLYTELY [Suspect]
     Active Substance: POLYETHYLENE GLYCOL 3350\POTASSIUM CHLORIDE\SODIUM BICARBONATE\SODIUM CHLORIDE\SODIUM SULFATE ANHYDROUS
     Indication: OFF LABEL USE
     Dosage: 4L
     Route: 048
     Dates: start: 20190729, end: 20190729

REACTIONS (11)
  - Dizziness [None]
  - Nausea [None]
  - Headache [None]
  - Paraesthesia [None]
  - Burning sensation [None]
  - Erythema [None]
  - Dyspnoea [None]
  - Abdominal distension [None]
  - Vomiting [None]
  - Urine output decreased [None]
  - Abdominal pain upper [None]

NARRATIVE: CASE EVENT DATE: 20190729
